FAERS Safety Report 22046033 (Version 5)
Quarter: 2025Q4

REPORT INFORMATION
  Report Type: Report from Study
  Country: US (occurrence: US)
  Receive Date: 20230228
  Receipt Date: 20251211
  Transmission Date: 20260117
  Serious: Yes (Other)
  Sender: INCYTE
  Company Number: US-INCYTE CORPORATION-2023IN000615

PATIENT
  Age: 88 Year

DRUGS (2)
  1. JAKAFI [Suspect]
     Active Substance: RUXOLITINIB
     Indication: Myelofibrosis
     Dosage: 10 MILLIGRAM, BID
     Route: 065
  2. JAKAFI [Suspect]
     Active Substance: RUXOLITINIB
     Dosage: 10 MILLIGRAM, BID

REACTIONS (14)
  - Neoplasm malignant [Unknown]
  - Haemorrhage [Unknown]
  - Arthritis [Not Recovered/Not Resolved]
  - Spinal stenosis [Not Recovered/Not Resolved]
  - Movement disorder [Unknown]
  - Dysstasia [Unknown]
  - Peripheral swelling [Unknown]
  - Back disorder [Unknown]
  - Back injury [Unknown]
  - Gait inability [Recovering/Resolving]
  - Intervertebral disc displacement [Unknown]
  - Nerve compression [Unknown]
  - Limb discomfort [Unknown]
  - Gait disturbance [Unknown]
